FAERS Safety Report 11076179 (Version 1)
Quarter: 2015Q2

REPORT INFORMATION
  Report Type: Spontaneous
  Country: US (occurrence: US)
  Receive Date: 20150429
  Receipt Date: 20150429
  Transmission Date: 20150821
  Serious: No
  Sender: FDA-Public Use
  Company Number: US-PFIZER INC-2015138482

PATIENT
  Sex: Male

DRUGS (1)
  1. LYRICA [Suspect]
     Active Substance: PREGABALIN
     Dosage: UNK

REACTIONS (6)
  - Memory impairment [Unknown]
  - Emotional distress [Unknown]
  - Diarrhoea [Unknown]
  - Coordination abnormal [Unknown]
  - Gait disturbance [Unknown]
  - Malaise [Unknown]
